FAERS Safety Report 21668182 (Version 1)
Quarter: 2022Q4

REPORT INFORMATION
  Report Type: Spontaneous
  Country: CN (occurrence: CN)
  Receive Date: 20221201
  Receipt Date: 20221201
  Transmission Date: 20230112
  Serious: Yes (Other)
  Sender: FDA-Public Use
  Company Number: CN-009507513-2211CHN005217

PATIENT
  Age: 57 Year
  Sex: Male

DRUGS (11)
  1. TEMOZOLOMIDE [Suspect]
     Active Substance: TEMOZOLOMIDE
     Indication: Plasmablastic lymphoma
     Dosage: 3 CYCLES
     Route: 048
     Dates: start: 201905, end: 202010
  2. CYCLOPHOSPHAMIDE [Concomitant]
     Active Substance: CYCLOPHOSPHAMIDE
     Indication: Plasmablastic lymphoma
     Dosage: 6 CYCLES
     Dates: start: 201905, end: 202010
  3. DOXORUBICIN [Concomitant]
     Active Substance: DOXORUBICIN
     Indication: Plasmablastic lymphoma
     Dosage: 6 CYCLES
     Dates: start: 201905, end: 202010
  4. VINCRISTINE [Concomitant]
     Active Substance: VINCRISTINE
     Indication: Plasmablastic lymphoma
     Dosage: 6 CYCLES
     Dates: start: 201905, end: 202010
  5. PREDNISONE [Concomitant]
     Active Substance: PREDNISONE
     Indication: Plasmablastic lymphoma
     Dosage: 6 CYCLES
     Dates: start: 201905, end: 202010
  6. RITUXIMAB [Concomitant]
     Active Substance: RITUXIMAB
     Indication: Plasmablastic lymphoma
     Dosage: 2 CYCLES
     Dates: start: 201905, end: 202010
  7. GEMCITABINE [Concomitant]
     Active Substance: GEMCITABINE
     Indication: Plasmablastic lymphoma
     Dosage: 2 CYCLES
     Dates: start: 201905, end: 202010
  8. OXALIPLATIN [Concomitant]
     Active Substance: OXALIPLATIN
     Indication: Plasmablastic lymphoma
     Dosage: 2 CYCLES
     Dates: start: 201905, end: 202010
  9. DEXAMETHASONE [Concomitant]
     Active Substance: DEXAMETHASONE
     Indication: Plasmablastic lymphoma
     Dosage: 2 CYCLES
     Dates: start: 201905, end: 202010
  10. IBRUTINIB [Concomitant]
     Active Substance: IBRUTINIB
     Indication: Plasmablastic lymphoma
     Dosage: 3 CYCLES
     Dates: start: 201905, end: 202010
  11. LENALIDOMIDE [Concomitant]
     Active Substance: LENALIDOMIDE
     Indication: Plasmablastic lymphoma
     Dosage: 3 CYCLES
     Dates: start: 201905, end: 202010

REACTIONS (3)
  - Pulmonary tuberculosis [Unknown]
  - Cytomegalovirus infection [Unknown]
  - Off label use [Unknown]

NARRATIVE: CASE EVENT DATE: 20190501
